FAERS Safety Report 7164746-7 (Version None)
Quarter: 2010Q4

REPORT INFORMATION
  Report Type: 
  Country: None (occurrence: None)
  Receive Date: 20101215
  Receipt Date: 20101203
  Transmission Date: 20110411
  Serious: Yes (Hospitalization, Other)
  Sender: FDA-Public Use
  Company Number: PHHY2009KR49178

PATIENT
  Sex: Male
  Weight: 66.2 kg

DRUGS (4)
  1. CGP 57148B T35717+ [Suspect]
     Indication: GASTROINTESTINAL STROMAL TUMOUR
     Dosage: 400 MG PER DAY
     Route: 048
     Dates: start: 20070704
  2. GASTER [Concomitant]
     Indication: PEPTIC ULCER
     Dosage: UNK
     Route: 042
     Dates: start: 20080714
  3. TRIXONE [Concomitant]
     Indication: PROPHYLAXIS
     Dosage: UNK
     Route: 042
     Dates: start: 20080715, end: 20080723
  4. CLAFORAN [Concomitant]
     Indication: PROPHYLAXIS
     Dosage: UNK
     Route: 042
     Dates: start: 20080823

REACTIONS (2)
  - COLECTOMY [None]
  - LIVER ABSCESS [None]
